FAERS Safety Report 6633006-2 (Version None)
Quarter: 2010Q1

REPORT INFORMATION
  Report Type: 
  Country: None (occurrence: None)
  Receive Date: 20100310
  Receipt Date: 20100301
  Transmission Date: 20100710
  Serious: Yes (Other)
  Sender: FDA-Public Use
  Company Number: 524842

PATIENT
  Age: 8 Year
  Sex: Male

DRUGS (3)
  1. VINCRISTINE SULFATE [Suspect]
     Indication: RHABDOMYOSARCOMA
  2. (ACTINOMYCIN D) [Suspect]
     Indication: RHABDOMYOSARCOMA
  3. CYCLOPHOSPHAMIDE [Suspect]
     Indication: RHABDOMYOSARCOMA

REACTIONS (7)
  - ACUTE MYELOID LEUKAEMIA [None]
  - ENGRAFT FAILURE [None]
  - MALIGNANT NEOPLASM PROGRESSION [None]
  - MYELODYSPLASTIC SYNDROME [None]
  - RENAL FAILURE ACUTE [None]
  - RHABDOMYOSARCOMA [None]
  - STEM CELL TRANSPLANT [None]
